FAERS Safety Report 25668391 (Version 2)
Quarter: 2025Q3

REPORT INFORMATION
  Report Type: Spontaneous
  Country: US (occurrence: US)
  Receive Date: 20250812
  Receipt Date: 20250902
  Transmission Date: 20251020
  Serious: Yes (Life-Threatening, Hospitalization)
  Sender: TEVA
  Company Number: US-TEVA-VS-3360001

PATIENT
  Age: 54 Year
  Sex: Female

DRUGS (1)
  1. HYDRALAZINE [Suspect]
     Active Substance: HYDRALAZINE HYDROCHLORIDE
     Indication: Hypertension
     Route: 065

REACTIONS (17)
  - Anti-neutrophil cytoplasmic antibody positive vasculitis [Unknown]
  - Acute myocardial infarction [Unknown]
  - Ulcer [Unknown]
  - Acute febrile neutrophilic dermatosis [Recovering/Resolving]
  - Lung opacity [Unknown]
  - Pharyngeal ulceration [Unknown]
  - Mouth ulceration [Unknown]
  - Bullous haemorrhagic dermatosis [Unknown]
  - Nasal mucosal ulcer [Unknown]
  - Periorbital disorder [Unknown]
  - Abscess [Unknown]
  - Acute respiratory failure [Unknown]
  - Mixed liver injury [Recovering/Resolving]
  - Pancytopenia [Unknown]
  - Periorbital cellulitis [Unknown]
  - Pachymeningitis [Unknown]
  - Toxic encephalopathy [Recovering/Resolving]
